FAERS Safety Report 8218745-4 (Version None)
Quarter: 2012Q1

REPORT INFORMATION
  Report Type: 
  Country: None (occurrence: None)
  Receive Date: 20120319
  Receipt Date: 20120312
  Transmission Date: 20120608
  Serious: Yes (Other)
  Sender: FDA-Public Use
  Company Number: PHHY2012MX022671

PATIENT
  Sex: Female

DRUGS (4)
  1. TRILEPTAL [Suspect]
     Indication: EPILEPSY
     Dosage: 5 TABLETS (300MG) DAILY
     Dates: start: 20010303
  2. OMEPRAZOLE [Concomitant]
     Indication: GASTROOESOPHAGEAL REFLUX DISEASE
     Dosage: 1 DAILY AT NIGHT
     Dates: start: 20090101
  3. KEPPRA [Concomitant]
     Indication: PETIT MAL EPILEPSY
     Dosage: 3 DAILY
     Dates: start: 20090501
  4. ALPRAZOLAM [Concomitant]
     Indication: INSOMNIA
     Dosage: 1 DAILY
     Dates: start: 20040301

REACTIONS (8)
  - FEELING HOT [None]
  - MALAISE [None]
  - INSOMNIA [None]
  - HYPERTENSION [None]
  - CHEST PAIN [None]
  - NERVOUSNESS [None]
  - CHOKING SENSATION [None]
  - VASODILATATION [None]
